FAERS Safety Report 8299732-7 (Version None)
Quarter: 2012Q2

REPORT INFORMATION
  Report Type: 
  Country: None (occurrence: None)
  Receive Date: 20120419
  Receipt Date: 20120413
  Transmission Date: 20120825
  Serious: Yes (Hospitalization)
  Sender: FDA-Public Use
  Company Number: UG-GILEAD-2012-0053166

PATIENT
  Age: 42 Year
  Sex: Female

DRUGS (1)
  1. TENOFOVIR DISOPROXIL FUMARATE [Suspect]
     Indication: PROPHYLAXIS AGAINST HIV INFECTION
     Dosage: UNK
     Dates: start: 20100211

REACTIONS (4)
  - BACK PAIN [None]
  - CHEST PAIN [None]
  - MALARIA [None]
  - COUGH [None]
